FAERS Safety Report 9281329 (Version 3)
Quarter: 2013Q4

REPORT INFORMATION
  Report Type: Spontaneous
  Country: GB (occurrence: None)
  Receive Date: 20130502
  Receipt Date: 20131021
  Transmission Date: 20140711
  Serious: Yes (Hospitalization, Other)
  Sender: FDA-Public Use
  Company Number: KAD201304-000490

PATIENT
  Age: 34 Year
  Sex: Female
  Weight: 57.7 kg

DRUGS (4)
  1. RIBAVIRIN (RIBAVIRIN) [Suspect]
     Indication: VIRAL HEPATITIS CARRIER
     Route: 048
     Dates: start: 20130129, end: 20130328
  2. INCIVO (TELAPREVIR) [Suspect]
     Indication: HEPATITIS C
     Route: 048
     Dates: start: 20130129, end: 20130328
  3. PEGINTERFERON ALFA-2A (INTERFERON ALFA-2A) [Concomitant]
  4. TEMAZEPAM (TEMAZEPAM) [Concomitant]

REACTIONS (1)
  - Drug reaction with eosinophilia and systemic symptoms [None]
